FAERS Safety Report 14176535 (Version 1)
Quarter: 2017Q4

REPORT INFORMATION
  Report Type: Spontaneous
  Country: US (occurrence: US)
  Receive Date: 20171109
  Receipt Date: 20171109
  Transmission Date: 20180321
  Serious: Yes (Disabling, Other)
  Sender: FDA-Public Use
  Company Number: None

PATIENT
  Sex: Female
  Weight: 110.25 kg

DRUGS (13)
  1. THYROID [Concomitant]
     Active Substance: LEVOTHYROXINE\LIOTHYRONINE
  2. TANZEUM [Suspect]
     Active Substance: ALBIGLUTIDE
     Indication: DIABETES MELLITUS
     Dosage: ?          OTHER STRENGTH:ONE PEN;QUANTITY:1 INJECTION(S);OTHER FREQUENCY:ONCE WEEKLY;?
     Route: 058
     Dates: start: 20171019, end: 20171026
  3. ALLOPURINOL. [Concomitant]
     Active Substance: ALLOPURINOL
  4. NOVOLOG [Concomitant]
     Active Substance: INSULIN ASPART
  5. LEVEMIR [Concomitant]
     Active Substance: INSULIN DETEMIR
  6. MAGNESIUM [Concomitant]
     Active Substance: MAGNESIUM
  7. ALTACE [Concomitant]
     Active Substance: RAMIPRIL
  8. VITAMIN D3 [Concomitant]
     Active Substance: CHOLECALCIFEROL
  9. COENZYME Q 10 [Concomitant]
  10. DYAZIDE [Concomitant]
     Active Substance: HYDROCHLOROTHIAZIDE\TRIAMTERENE
  11. ASPIRIN. [Concomitant]
     Active Substance: ASPIRIN
  12. PROBIOTIC [Concomitant]
     Active Substance: PROBIOTICS NOS
  13. METFORMIN [Concomitant]
     Active Substance: METFORMIN HYDROCHLORIDE

REACTIONS (3)
  - Facial paralysis [None]
  - Lip swelling [None]
  - Diarrhoea [None]

NARRATIVE: CASE EVENT DATE: 20171029
